FAERS Safety Report 17732601 (Version 3)
Quarter: 2020Q2

REPORT INFORMATION
  Report Type: Spontaneous
  Country: TW (occurrence: TW)
  Receive Date: 20200501
  Receipt Date: 20200522
  Transmission Date: 20200714
  Serious: Yes (Death, Other)
  Sender: FDA-Public Use
  Company Number: TW-ASTRAZENECA-2020SE55403

PATIENT
  Age: 69 Year
  Sex: Male

DRUGS (15)
  1. ENTECAVIR. [Concomitant]
     Active Substance: ENTECAVIR
     Dates: start: 20191213
  2. EXFORGE HCT [Concomitant]
     Active Substance: AMLODIPINE BESYLATE\HYDROCHLOROTHIAZIDE\VALSARTAN
  3. CRESTOR [Concomitant]
     Active Substance: ROSUVASTATIN CALCIUM
  4. DOXYCYCLINE. [Concomitant]
     Active Substance: DOXYCYCLINE
  5. ENTECAVIR. [Suspect]
     Active Substance: ENTECAVIR
     Route: 065
  6. XYZAL [Concomitant]
     Active Substance: LEVOCETIRIZINE DIHYDROCHLORIDE
  7. LAMIVUDINE. [Suspect]
     Active Substance: LAMIVUDINE
     Route: 065
  8. GALVUS [Concomitant]
     Active Substance: VILDAGLIPTIN
  9. XGEVA [Concomitant]
     Active Substance: DENOSUMAB
  10. METRONIDAZOLE. [Concomitant]
     Active Substance: METRONIDAZOLE
     Indication: LIVER ABSCESS
     Dates: start: 20190307
  11. ALIMTA [Concomitant]
     Active Substance: PEMETREXED DISODIUM
  12. OSIMERTINIB. [Suspect]
     Active Substance: OSIMERTINIB
     Indication: LUNG ADENOCARCINOMA
     Route: 048
     Dates: start: 20190303
  13. AMARYL [Concomitant]
     Active Substance: GLIMEPIRIDE
     Indication: TYPE 2 DIABETES MELLITUS
     Dates: start: 20170916
  14. CEFTRIAZONE [Concomitant]
     Indication: LIVER ABSCESS
     Dates: start: 20190222
  15. ZEFFIX [Concomitant]
     Active Substance: LAMIVUDINE
     Dates: start: 20191210

REACTIONS (1)
  - Hepatitis B [Recovering/Resolving]

NARRATIVE: CASE EVENT DATE: 20191126
